FAERS Safety Report 20371532 (Version 1)
Quarter: 2022Q1

REPORT INFORMATION
  Report Type: Spontaneous
  Country: KR (occurrence: None)
  Receive Date: 20220124
  Receipt Date: 20220124
  Transmission Date: 20220423
  Serious: Yes (Hospitalization, Other)
  Sender: FDA-Public Use
  Company Number: 2022A032773

PATIENT
  Age: 67 Year
  Sex: Male

DRUGS (5)
  1. GEFITINIB [Suspect]
     Active Substance: GEFITINIB
     Indication: Lung adenocarcinoma
     Route: 048
  2. OSIMERTINIB [Suspect]
     Active Substance: OSIMERTINIB
     Indication: Lung adenocarcinoma
     Route: 048
     Dates: start: 201712, end: 201804
  3. GEMCITABINE [Concomitant]
     Active Substance: GEMCITABINE
     Indication: Lung adenocarcinoma
     Dosage: 1.25MG/M2 ON DAYS 1 AND 8, EVERY THREE WEEKS
     Route: 065
  4. CISPLATIN [Concomitant]
     Active Substance: CISPLATIN
     Indication: Lung adenocarcinoma
     Dosage: 75MG/M2 ON DAY 1, EVERY THREE WEEKS
     Route: 065
  5. FILGRASTIM [Concomitant]
     Active Substance: FILGRASTIM
     Indication: Platelet transfusion
     Dosage: 150 MCG
     Route: 058

REACTIONS (6)
  - Disease progression [Unknown]
  - Drug resistance [Unknown]
  - EGFR gene mutation [Unknown]
  - Aplastic anaemia [Unknown]
  - Thrombocytopenia [Recovering/Resolving]
  - Neutropenia [Unknown]
